FAERS Safety Report 17829919 (Version 1)
Quarter: 2020Q2

REPORT INFORMATION
  Report Type: Spontaneous
  Country: CA (occurrence: CA)
  Receive Date: 20200527
  Receipt Date: 20200527
  Transmission Date: 20200714
  Serious: Yes (Death)
  Sender: FDA-Public Use
  Company Number: CA-TEVA-2020-CA-1239773

PATIENT
  Age: 78 Year
  Sex: Male
  Weight: 90 kg

DRUGS (7)
  1. DEXAMETHASONE. [Concomitant]
     Active Substance: DEXAMETHASONE
  2. ROSUVASTATIN. [Concomitant]
     Active Substance: ROSUVASTATIN
  3. DEGARELIX ACETATE [Concomitant]
     Active Substance: DEGARELIX ACETATE
  4. METFORMIN [Concomitant]
     Active Substance: METFORMIN HYDROCHLORIDE
  5. CELECOXIB. [Concomitant]
     Active Substance: CELECOXIB
  6. RAMIPRIL. [Concomitant]
     Active Substance: RAMIPRIL
  7. DOCETAXEL. [Suspect]
     Active Substance: DOCETAXEL
     Indication: PROSTATE CANCER
     Route: 042

REACTIONS (4)
  - Respiratory failure [Fatal]
  - Febrile neutropenia [Fatal]
  - Pneumonitis [Fatal]
  - Pneumonia [Fatal]
